FAERS Safety Report 12721370 (Version 1)
Quarter: 2016Q3

REPORT INFORMATION
  Report Type: Spontaneous
  Country: US (occurrence: US)
  Receive Date: 20160906
  Receipt Date: 20160906
  Transmission Date: 20161109
  Serious: Yes (Disabling, Other)
  Sender: FDA-Public Use
  Company Number: None

PATIENT
  Age: 49 Year
  Sex: Male

DRUGS (1)
  1. TANZEUM [Suspect]
     Active Substance: ALBIGLUTIDE
     Indication: TYPE 2 DIABETES MELLITUS
     Dates: start: 20160720, end: 20160825

REACTIONS (3)
  - Impaired work ability [None]
  - Abdominal pain upper [None]
  - Insomnia [None]

NARRATIVE: CASE EVENT DATE: 20160825
